FAERS Safety Report 10540961 (Version 1)
Quarter: 2014Q4

REPORT INFORMATION
  Report Type: Spontaneous
  Country: US (occurrence: None)
  Receive Date: 20141023
  Receipt Date: 20141023
  Transmission Date: 20150529
  Serious: Yes (Disabling)
  Sender: FDA-Public Use
  Company Number: None

PATIENT
  Age: 71 Year
  Sex: Female
  Weight: 60.33 kg

DRUGS (2)
  1. LISINOPRIL 5 MG [Suspect]
     Active Substance: LISINOPRIL
     Indication: BLOOD PRESSURE
     Dosage: TAKEN BY MOUTH
     Dates: start: 20140625, end: 20140725
  2. TEKTURNA [Suspect]
     Active Substance: ALISKIREN HEMIFUMARATE
     Indication: HYPERTENSION
     Dates: start: 20110401, end: 20131025

REACTIONS (6)
  - Hand fracture [None]
  - Abnormal dreams [None]
  - Sleep terror [None]
  - Aggression [None]
  - Intentional self-injury [None]
  - Abnormal behaviour [None]

NARRATIVE: CASE EVENT DATE: 20140731
